FAERS Safety Report 25045066 (Version 1)
Quarter: 2025Q1

REPORT INFORMATION
  Report Type: Spontaneous
  Country: FI (occurrence: FI)
  Receive Date: 20250306
  Receipt Date: 20250306
  Transmission Date: 20250409
  Serious: Yes (Hospitalization, Other)
  Sender: CELLTRION
  Company Number: None

PATIENT

DRUGS (4)
  1. VEGZELMA [Suspect]
     Active Substance: BEVACIZUMAB-ADCD
     Indication: Colon cancer
     Route: 042
     Dates: start: 20240412, end: 20240808
  2. VEGZELMA [Suspect]
     Active Substance: BEVACIZUMAB-ADCD
     Indication: Metastases to lung
  3. CAPECITABINE ORION [Concomitant]
     Indication: Colon cancer
     Route: 048
     Dates: start: 20240524, end: 20240903
  4. CAPECITABINE ORION [Concomitant]
     Indication: Metastases to lung

REACTIONS (3)
  - Carotid artery stenosis [Recovering/Resolving]
  - Cerebral infarction [Recovering/Resolving]
  - Cerebrovascular disorder [Recovering/Resolving]

NARRATIVE: CASE EVENT DATE: 20240907
